FAERS Safety Report 10023677 (Version 3)
Quarter: 2014Q2

REPORT INFORMATION
  Report Type: Spontaneous
  Country: FR (occurrence: FR)
  Receive Date: 20140320
  Receipt Date: 20140411
  Transmission Date: 20141212
  Serious: Yes (Life-Threatening, Hospitalization)
  Sender: FDA-Public Use
  Company Number: FR-JNJFOC-20140307976

PATIENT
  Age: 35 Year
  Sex: Female
  Weight: 52 kg

DRUGS (5)
  1. STELARA [Suspect]
     Indication: RHEUMATIC DISORDER
     Route: 058
     Dates: start: 201202, end: 201312
  2. STELARA [Suspect]
     Indication: PUSTULAR PSORIASIS
     Route: 058
     Dates: start: 201202, end: 201312
  3. METHOTREXATE [Concomitant]
     Route: 065
  4. RISPERDAL [Concomitant]
     Route: 065
     Dates: start: 1990
  5. TARDYFERON [Concomitant]
     Route: 065
     Dates: start: 2005

REACTIONS (2)
  - Congestive cardiomyopathy [Recovered/Resolved with Sequelae]
  - Mitral valve incompetence [Unknown]
